FAERS Safety Report 20013316 (Version 1)
Quarter: 2021Q4

REPORT INFORMATION
  Report Type: Spontaneous
  Country: GB (occurrence: GB)
  Receive Date: 20211029
  Receipt Date: 20211029
  Transmission Date: 20220303
  Serious: Yes (Other)
  Sender: FDA-Public Use
  Company Number: None

PATIENT
  Age: 39 Year
  Sex: Female
  Weight: 55.78 kg

DRUGS (1)
  1. DEXTROAMPHETAMINE SULFATE [Suspect]
     Active Substance: DEXTROAMPHETAMINE SULFATE
     Indication: Attention deficit hyperactivity disorder
     Dosage: 40 MILLIGRAM DAILY;
     Route: 048
     Dates: start: 20210316, end: 202106

REACTIONS (3)
  - Executive dysfunction [Recovering/Resolving]
  - Dissociation [Unknown]
  - Confusional state [Unknown]

NARRATIVE: CASE EVENT DATE: 20210501
